FAERS Safety Report 6198887-8 (Version None)
Quarter: 2009Q2

REPORT INFORMATION
  Report Type: 
  Country: None (occurrence: None)
  Receive Date: 20090519
  Receipt Date: 20090519
  Transmission Date: 20091009
  Serious: Yes (Other)
  Sender: FDA-Public Use
  Company Number: None

PATIENT
  Age: 3 Year
  Sex: Female
  Weight: 11.5 kg

DRUGS (1)
  1. ALTEPLASE GENENTECH [Suspect]
     Indication: DEEP VEIN THROMBOSIS
     Dosage: 0.05 MG/KG PER HOUR IV DRIP
     Route: 041
     Dates: start: 20090513, end: 20090514

REACTIONS (4)
  - INFUSION SITE ERYTHEMA [None]
  - INFUSION SITE EXTRAVASATION [None]
  - INFUSION SITE REACTION [None]
  - INFUSION SITE SWELLING [None]
